FAERS Safety Report 15602154 (Version 1)
Quarter: 2018Q4

REPORT INFORMATION
  Report Type: Spontaneous
  Country: US (occurrence: US)
  Receive Date: 20181109
  Receipt Date: 20181109
  Transmission Date: 20190205
  Serious: No
  Sender: FDA-Public Use
  Company Number: US-009507513-1811USA003559

PATIENT
  Age: 24 Year
  Sex: Female

DRUGS (1)
  1. INTRON A [Suspect]
     Active Substance: INTERFERON ALFA-2B
     Dosage: 3 MIU 3 TIMES A WEEK, STRENGTH: 18 MU
     Route: 058
     Dates: start: 201607

REACTIONS (11)
  - Vascular pain [Unknown]
  - Hypothyroidism [Unknown]
  - Arthralgia [Unknown]
  - Myalgia [Unknown]
  - Blood triglycerides increased [Unknown]
  - Arthralgia [Unknown]
  - General physical health deterioration [Unknown]
  - Impaired work ability [Unknown]
  - Sleep disorder due to a general medical condition [Unknown]
  - Pain [Unknown]
  - Vitamin D decreased [Unknown]

NARRATIVE: CASE EVENT DATE: 201702
